FAERS Safety Report 16917055 (Version 4)
Quarter: 2020Q1

REPORT INFORMATION
  Report Type: Report from Study
  Country: BR (occurrence: BR)
  Receive Date: 20191015
  Receipt Date: 20200222
  Transmission Date: 20200409
  Serious: Yes (Other)
  Sender: FDA-Public Use
  Company Number: BR-ROCHE-2431016

PATIENT
  Age: 35 Year
  Sex: Female
  Weight: 60 kg

DRUGS (5)
  1. XOLAIR [Suspect]
     Active Substance: OMALIZUMAB
     Route: 058
     Dates: start: 20190607
  2. XOLAIR [Suspect]
     Active Substance: OMALIZUMAB
     Route: 058
     Dates: start: 20190710
  3. XOLAIR [Suspect]
     Active Substance: OMALIZUMAB
     Indication: URTICARIA
     Route: 058
     Dates: start: 20190410
  4. XOLAIR [Suspect]
     Active Substance: OMALIZUMAB
     Route: 058
     Dates: start: 201905
  5. XOLAIR [Suspect]
     Active Substance: OMALIZUMAB
     Route: 058

REACTIONS (17)
  - Skin burning sensation [Unknown]
  - Application site swelling [Unknown]
  - Flushing [Not Recovered/Not Resolved]
  - Photosensitivity reaction [Not Recovered/Not Resolved]
  - Injection site warmth [Recovering/Resolving]
  - Thermal burn [Unknown]
  - Pyrexia [Recovering/Resolving]
  - Erythema [Recovering/Resolving]
  - Sunburn [Not Recovered/Not Resolved]
  - Injection site mass [Unknown]
  - Swelling face [Unknown]
  - Dermatitis [Unknown]
  - Product preparation error [Unknown]
  - Skin irritation [Not Recovered/Not Resolved]
  - Inappropriate schedule of product administration [Unknown]
  - Sensitive skin [Not Recovered/Not Resolved]
  - Drug hypersensitivity [Unknown]

NARRATIVE: CASE EVENT DATE: 20190410
